FAERS Safety Report 6274675-9 (Version None)
Quarter: 2009Q3

REPORT INFORMATION
  Report Type: 
  Country: None (occurrence: None)
  Receive Date: 20090721
  Receipt Date: 20070516
  Transmission Date: 20100115
  Serious: Yes (Hospitalization, Other)
  Sender: FDA-Public Use
  Company Number: US-ASTRAZENECA-2006UW26466

PATIENT
  Age: 282 Month
  Sex: Female
  Weight: 77.1 kg

DRUGS (14)
  1. SEROQUEL [Suspect]
     Indication: MENTAL DISORDER
     Route: 048
     Dates: end: 20050201
  2. SEROQUEL [Suspect]
     Dosage: 25 MG - 50 MG
     Route: 048
     Dates: start: 20060122
  3. ABILIFY [Suspect]
     Dates: start: 20040101, end: 20061101
  4. PAXIL [Concomitant]
     Dates: start: 20040101, end: 20061101
  5. BENICAR [Concomitant]
     Dates: start: 20050615
  6. NEXIUM [Concomitant]
     Dates: start: 20050615
  7. LISINOPRIL [Concomitant]
     Route: 048
     Dates: start: 20051212
  8. ATORVASTATIN CALCIUM [Concomitant]
     Route: 048
     Dates: start: 20051224
  9. HYDROCHLOROTHIAZIDE [Concomitant]
     Route: 048
     Dates: start: 20051224
  10. LOPRESSOR [Concomitant]
     Dosage: 100 MG - 150 MG
     Route: 048
     Dates: start: 20051224
  11. CLONIDINE [Concomitant]
     Dosage: 0.3 MG - 0.6 MG
     Route: 048
     Dates: start: 20060122
  12. CARDIZEM CD [Concomitant]
     Route: 048
     Dates: start: 20060522
  13. COREG [Concomitant]
     Dosage: 6.25 MG - 25 MG
     Route: 048
     Dates: start: 20060522
  14. NEURONTIN [Concomitant]
     Dates: start: 20060802

REACTIONS (13)
  - DIABETES MELLITUS [None]
  - DIABETES MELLITUS INADEQUATE CONTROL [None]
  - DIABETIC ENTEROPATHY [None]
  - DIABETIC GASTROPARESIS [None]
  - DIABETIC NEPHROPATHY [None]
  - DIABETIC NEUROPATHY [None]
  - DIABETIC RETINOPATHY [None]
  - HYPERGLYCAEMIA [None]
  - HYPOGLYCAEMIA [None]
  - KETOACIDOSIS [None]
  - KETOSIS [None]
  - NEUROPATHY PERIPHERAL [None]
  - PANCREATITIS [None]
